FAERS Safety Report 17141182 (Version 3)
Quarter: 2020Q1

REPORT INFORMATION
  Report Type: Spontaneous
  Country: US (occurrence: US)
  Receive Date: 20191211
  Receipt Date: 20200311
  Transmission Date: 20200409
  Serious: No
  Sender: FDA-Public Use
  Company Number: US-PFIZER INC-2019532963

PATIENT
  Age: 58 Year
  Sex: Female

DRUGS (12)
  1. DOCETAXEL. [Suspect]
     Active Substance: DOCETAXEL
     Indication: BREAST CANCER FEMALE
     Dosage: 75 MG/M2, CYCLIC (1 CYCLE)
     Dates: start: 20161202, end: 20170207
  2. PARAPLATIN [Concomitant]
     Active Substance: CARBOPLATIN
     Indication: BREAST CANCER FEMALE
     Dosage: UNK
  3. TRASTUZUMAB. [Concomitant]
     Active Substance: TRASTUZUMAB
     Indication: BREAST CANCER FEMALE
     Dosage: UNK
  4. ALPRAZOLAM. [Concomitant]
     Active Substance: ALPRAZOLAM
     Dosage: UNK
     Dates: start: 201611, end: 2019
  5. TAXOTERE [Suspect]
     Active Substance: DOCETAXEL
     Indication: BREAST CANCER FEMALE
     Dosage: 75 MG/M2, CYCLIC (1 CYCLE)
     Dates: start: 20161202, end: 20170207
  6. TAXOTERE [Suspect]
     Active Substance: DOCETAXEL
     Dosage: 55 MG/M2, CYCLIC (1 CYCLE)
     Dates: start: 20161202, end: 20170207
  7. PERJETA [Concomitant]
     Active Substance: PERTUZUMAB
     Indication: BREAST CANCER FEMALE
     Dosage: UNK
  8. DOCETAXEL. [Suspect]
     Active Substance: DOCETAXEL
     Dosage: 55 MG/M2, CYCLIC (1 CYCLE)
     Dates: start: 20161202, end: 20170207
  9. DOCEFREZ [Suspect]
     Active Substance: DOCETAXEL ANHYDROUS
     Dosage: UNK
     Dates: start: 201612, end: 201702
  10. DOCETAXEL. [Suspect]
     Active Substance: DOCETAXEL
     Dosage: 65 MG/M2, CYCLIC (1 CYCLE)
     Dates: start: 20161202, end: 20170207
  11. TAXOTERE [Suspect]
     Active Substance: DOCETAXEL
     Dosage: 65 MG/M2, CYCLIC (1 CYCLE)
     Dates: start: 20161202, end: 20170207
  12. FISH OIL-OTC [Concomitant]
     Dosage: UNK
     Dates: start: 201607, end: 201612

REACTIONS (5)
  - Hair disorder [Not Recovered/Not Resolved]
  - Hair texture abnormal [Not Recovered/Not Resolved]
  - Alopecia [Not Recovered/Not Resolved]
  - Madarosis [Not Recovered/Not Resolved]
  - Hair colour changes [Not Recovered/Not Resolved]

NARRATIVE: CASE EVENT DATE: 20170907
